FAERS Safety Report 12796819 (Version 1)
Quarter: 2016Q3

REPORT INFORMATION
  Report Type: Spontaneous
  Country: US (occurrence: US)
  Receive Date: 20160929
  Receipt Date: 20160929
  Transmission Date: 20161109
  Serious: Yes (Other)
  Sender: FDA-Public Use
  Company Number: US-PFIZER INC-2016447223

PATIENT
  Age: 61 Year
  Sex: Female

DRUGS (2)
  1. LIPITOR [Suspect]
     Active Substance: ATORVASTATIN CALCIUM
     Dosage: UNK
  2. HUMIRA [Interacting]
     Active Substance: ADALIMUMAB
     Dosage: UNK

REACTIONS (3)
  - Lupus-like syndrome [Unknown]
  - Drug interaction [Unknown]
  - Hepatic enzyme increased [Unknown]
